FAERS Safety Report 20150848 (Version 2)
Quarter: 2022Q2

REPORT INFORMATION
  Report Type: Report from Study
  Country: US (occurrence: None)
  Receive Date: 20211206
  Receipt Date: 20220509
  Transmission Date: 20220721
  Serious: Yes (Other)
  Sender: FDA-Public Use
  Company Number: US-ROCHE-2734963

PATIENT
  Age: 80 Year
  Sex: Male
  Weight: 105 kg

DRUGS (22)
  1. RANIBIZUMAB [Suspect]
     Active Substance: RANIBIZUMAB
     Indication: Neovascular age-related macular degeneration
     Dosage: DATE OF MOST RECENT DOSE OF STUDY EYE RANIBIZUMAB PRIOR TO AE ONSET AND SAE ONSET: 01/JUL/2020?DOSE
     Route: 050
  2. RANIBIZUMAB [Suspect]
     Active Substance: RANIBIZUMAB
  3. RANIBIZUMAB [Suspect]
     Active Substance: RANIBIZUMAB
  4. RANIBIZUMAB [Suspect]
     Active Substance: RANIBIZUMAB
  5. RANIBIZUMAB [Suspect]
     Active Substance: RANIBIZUMAB
  6. RANIBIZUMAB [Suspect]
     Active Substance: RANIBIZUMAB
  7. RANIBIZUMAB [Concomitant]
     Active Substance: RANIBIZUMAB
     Dosage: DATE OF MOST RECENT DOSE OF SPONSOR SUPPLIED FELLOW EYE RANIBIZUMAB FOR INTRAVITREAL INJECTION PRIOR
     Route: 050
     Dates: start: 20201216
  8. NEXIUM [Concomitant]
     Active Substance: ESOMEPRAZOLE MAGNESIUM
     Indication: Gastrooesophageal reflux disease
     Dates: start: 20160517
  9. LOSARTAN [Concomitant]
     Active Substance: LOSARTAN
     Indication: Hypertension
     Dates: start: 2014
  10. VESICARE [Concomitant]
     Active Substance: SOLIFENACIN SUCCINATE
     Indication: Benign prostatic hyperplasia
     Dates: start: 20160509, end: 20210318
  11. LUMIGAN [Concomitant]
     Active Substance: BIMATOPROST
     Indication: Open angle glaucoma
     Dates: start: 201507
  12. LUMIGAN [Concomitant]
     Active Substance: BIMATOPROST
     Dates: start: 201507
  13. ASPIRIN [Concomitant]
     Active Substance: ASPIRIN
     Indication: Cerebrovascular accident prophylaxis
     Dosage: MG
     Route: 048
     Dates: start: 201903, end: 20210121
  14. ATORVASTATIN [Concomitant]
     Active Substance: ATORVASTATIN
     Indication: Hypercholesterolaemia
     Dates: start: 20191020
  15. UMECLIDINIUM BROMIDE\VILANTEROL TRIFENATATE [Concomitant]
     Active Substance: UMECLIDINIUM BROMIDE\VILANTEROL TRIFENATATE
     Indication: Asthma
     Dosage: INHALER
     Dates: start: 20191020
  16. PROAIR HFA [Concomitant]
     Active Substance: ALBUTEROL SULFATE
     Indication: Asthma
     Dosage: INHALER
     Dates: start: 20191020
  17. MUCINEX [Concomitant]
     Active Substance: GUAIFENESIN
     Indication: Asthma
     Dates: start: 201903
  18. AZELASTINE HYDROCHLORIDE [Concomitant]
     Active Substance: AZELASTINE HYDROCHLORIDE
     Indication: Asthma
     Dates: start: 20200124
  19. FLUTICASONE PROPIONATE [Concomitant]
     Active Substance: FLUTICASONE PROPIONATE
     Indication: Asthma
     Dates: start: 20200124
  20. LORATADINE [Concomitant]
     Active Substance: LORATADINE
     Indication: Asthma
     Dates: start: 20200124
  21. MYRBETRIQ [Concomitant]
     Active Substance: MIRABEGRON
     Indication: Benign prostatic hyperplasia
     Dates: start: 20201210, end: 20220310
  22. MODERNA COVID-19 VACCINE [Concomitant]
     Active Substance: ELASOMERAN
     Indication: COVID-19 prophylaxis
     Dates: start: 20210111, end: 20210111

REACTIONS (1)
  - Scleral thinning [Recovered/Resolved]

NARRATIVE: CASE EVENT DATE: 20201216
